FAERS Safety Report 4817812-2 (Version None)
Quarter: 2005Q3

REPORT INFORMATION
  Report Type: 
  Country: None (occurrence: None)
  Receive Date: 20050929
  Receipt Date: 20050606
  Transmission Date: 20060218
  Serious: No
  Sender: FDA-Public Use
  Company Number: 05P-163-0302328-00

PATIENT
  Age: 62 Year
  Sex: Female
  Weight: 77.1115 kg

DRUGS (11)
  1. HUMIRA [Suspect]
     Indication: RHEUMATOID ARTHRITIS
     Dosage: 1 IN 2 WK, SUBCUTANEOUS
     Route: 058
     Dates: start: 20050401
  2. PHENOBARBITAL [Concomitant]
  3. SULFASALAZINE [Concomitant]
  4. METHOTREXATE SODIUM [Concomitant]
  5. CANDESARTAN CILEXETIL [Concomitant]
  6. ESTROGENS CONJUGATED [Concomitant]
  7. FOLIC ACID [Concomitant]
  8. LEVOTHYROXINE [Concomitant]
  9. HYDROXYZINE [Concomitant]
  10. FEXOFENADINE HYDROCHLORIDE [Concomitant]
  11. ACETAMINOPHEN [Concomitant]

REACTIONS (1)
  - DRUG INEFFECTIVE [None]
